FAERS Safety Report 4848119-5 (Version None)
Quarter: 2005Q4

REPORT INFORMATION
  Report Type: 
  Country: None (occurrence: None)
  Receive Date: 20051206
  Receipt Date: 20051115
  Transmission Date: 20060501
  Serious: Yes (Hospitalization)
  Sender: FDA-Public Use
  Company Number: MPS1-10463

PATIENT
  Age: 5 Year
  Sex: Female

DRUGS (1)
  1. ALDURAZYME [Suspect]
     Indication: MUCOPOLYSACCHARIDOSIS I
     Dates: start: 20030708

REACTIONS (6)
  - DYSPNOEA [None]
  - MALAISE [None]
  - PO2 DECREASED [None]
  - PYREXIA [None]
  - VIRAL INFECTION [None]
  - VOMITING [None]
